FAERS Safety Report 5563979-0 (Version None)
Quarter: 2007Q4

REPORT INFORMATION
  Report Type: 
  Country: None (occurrence: None)
  Receive Date: 20071217
  Receipt Date: 20071210
  Transmission Date: 20080405
  Serious: Yes (Other)
  Sender: FDA-Public Use
  Company Number: US-PFIZER INC-2007104193

PATIENT
  Age: 41 Year
  Sex: Male
  Weight: 90.7 kg

DRUGS (3)
  1. ZYRTEC [Suspect]
     Indication: SINUS DISORDER
     Route: 048
  2. LAMICTAL [Interacting]
     Indication: EPILEPSY
  3. TRILEPTAL [Interacting]
     Indication: EPILEPSY

REACTIONS (2)
  - CONVULSION [None]
  - DRUG INTERACTION [None]
